FAERS Safety Report 4519427-2 (Version None)
Quarter: 2004Q4

REPORT INFORMATION
  Report Type: 
  Country: None (occurrence: None)
  Receive Date: 20041202
  Receipt Date: 20041122
  Transmission Date: 20050328
  Serious: Yes (Other)
  Sender: FDA-Public Use
  Company Number: 2004092446

PATIENT
  Age: 64 Year
  Sex: Male
  Weight: 102 kg

DRUGS (5)
  1. NEURONTIN [Suspect]
     Indication: POLYNEUROPATHY
     Dosage: 1800 MG (300 MG, 6 IN 1 D), ORAL
     Route: 048
     Dates: start: 20000101
  2. LEVOTHYROXINE SODIUM [Concomitant]
  3. AMITRIPTYLINE HCL [Concomitant]
  4. BENZYLPENICILLIN SODIUM (BENZYLPENICILLIN SODIUM) [Concomitant]
  5. DICLOFENAC (DICLOFENAC) [Concomitant]

REACTIONS (3)
  - ATRIOVENTRICULAR BLOCK FIRST DEGREE [None]
  - ATRIOVENTRICULAR BLOCK SECOND DEGREE [None]
  - VERTIGO [None]
